FAERS Safety Report 21734638 (Version 6)
Quarter: 2023Q1

REPORT INFORMATION
  Report Type: Report from Study
  Country: CA (occurrence: CA)
  Receive Date: 20221215
  Receipt Date: 20230330
  Transmission Date: 20230417
  Serious: Yes (Other)
  Sender: FDA-Public Use
  Company Number: CA-002147023-NVSC2022CA286976

PATIENT
  Age: 71 Year
  Sex: Female

DRUGS (1)
  1. ERELZI [Suspect]
     Active Substance: ETANERCEPT-SZZS
     Indication: Rheumatoid arthritis
     Dosage: 50 MG
     Route: 058
     Dates: start: 20221127

REACTIONS (7)
  - Hydronephrosis [Unknown]
  - Nephrolithiasis [Unknown]
  - Blood pressure systolic increased [Recovering/Resolving]
  - Heart rate increased [Unknown]
  - Aphthous ulcer [Unknown]
  - Oral mucosal eruption [Unknown]
  - Therapeutic product effect incomplete [Unknown]
